FAERS Safety Report 25512420 (Version 3)
Quarter: 2025Q3

REPORT INFORMATION
  Report Type: Spontaneous
  Country: JP (occurrence: JP)
  Receive Date: 20250703
  Receipt Date: 20250929
  Transmission Date: 20251021
  Serious: Yes (Hospitalization, Other)
  Sender: MERCK SHARP & DOHME LLC
  Company Number: JP-009507513-2301085

PATIENT
  Age: 65 Year
  Sex: Female

DRUGS (3)
  1. KEYTRUDA [Suspect]
     Active Substance: PEMBROLIZUMAB
     Indication: Uterine cancer
     Route: 041
     Dates: start: 202501, end: 202505
  2. CARBOPLATIN [Suspect]
     Active Substance: CARBOPLATIN
     Indication: Uterine cancer
     Route: 041
     Dates: start: 202501, end: 202507
  3. PACLITAXEL [Suspect]
     Active Substance: PACLITAXEL
     Indication: Uterine cancer
     Route: 041
     Dates: start: 202501, end: 202507

REACTIONS (6)
  - Febrile neutropenia [Unknown]
  - Sarcoidosis [Recovering/Resolving]
  - Procedural pancreatitis [Recovering/Resolving]
  - Immune-mediated adrenal insufficiency [Recovered/Resolved]
  - Cholangitis sclerosing [Recovering/Resolving]
  - Granuloma [Unknown]

NARRATIVE: CASE EVENT DATE: 20250101
